FAERS Safety Report 12243573 (Version 1)
Quarter: 2016Q2

REPORT INFORMATION
  Report Type: Report from Study
  Country: US (occurrence: US)
  Receive Date: 20160406
  Receipt Date: 20160406
  Transmission Date: 20160815
  Serious: No
  Sender: FDA-Public Use
  Company Number: ADR-2015-00699

PATIENT
  Age: 34 Year
  Sex: Female

DRUGS (23)
  1. COMPOUNDED BACLOFEN [Suspect]
     Active Substance: BACLOFEN
     Dosage: 99.90 MCG/DAY
     Route: 037
  2. DILAUDID [Suspect]
     Active Substance: HYDROMORPHONE HYDROCHLORIDE
     Dosage: 1.7982 MG/DAY
     Route: 037
     Dates: start: 20150402
  3. DILAUDID [Suspect]
     Active Substance: HYDROMORPHONE HYDROCHLORIDE
     Dosage: 1.9980 MG/DAY
     Route: 037
  4. BUPIVACAINE. [Suspect]
     Active Substance: BUPIVACAINE
     Dosage: 14.985 MG/DAY
     Route: 037
  5. LASIX [Concomitant]
     Active Substance: FUROSEMIDE
  6. BUPIVACAINE. [Suspect]
     Active Substance: BUPIVACAINE
     Dosage: 14.985 MG/DAY
     Route: 037
     Dates: start: 20150120
  7. CLONIDINE. [Suspect]
     Active Substance: CLONIDINE
     Dosage: 269.74 MCG/DAY
     Route: 037
     Dates: start: 20150402
  8. POTASSIUM CITRATE. [Concomitant]
     Active Substance: POTASSIUM CITRATE
  9. CLONIDINE. [Suspect]
     Active Substance: CLONIDINE
     Dosage: 299.71 MCG/DAY
     Route: 037
  10. COMPOUNDED BACLOFEN [Suspect]
     Active Substance: BACLOFEN
     Dosage: 67.43 MCG/DAY
     Route: 037
     Dates: start: 20150402
  11. SPIRONOLACTONE. [Concomitant]
     Active Substance: SPIRONOLACTONE
  12. PROVIGIL [Concomitant]
     Active Substance: MODAFINIL
  13. ZEMPLAR [Concomitant]
     Active Substance: PARICALCITOL
  14. PROMETHAZINE HCL [Concomitant]
     Active Substance: PROMETHAZINE HYDROCHLORIDE
  15. BUPIVACAINE. [Suspect]
     Active Substance: BUPIVACAINE
     Dosage: 13.487 MG/DAY
     Route: 037
     Dates: start: 20150402
  16. CYMBALTA [Concomitant]
     Active Substance: DULOXETINE HYDROCHLORIDE
  17. VITAMIN D [Concomitant]
     Active Substance: CHOLECALCIFEROL
  18. COMPOUNDED BACLOFEN [Suspect]
     Active Substance: BACLOFEN
     Dosage: 73.93 MCG/DAY
     Route: 037
     Dates: start: 20150120
  19. DILAUDID [Suspect]
     Active Substance: HYDROMORPHONE HYDROCHLORIDE
     Dosage: 1.9980 MG/DAY
     Route: 037
     Dates: start: 20150120
  20. NUVIGIL [Concomitant]
     Active Substance: ARMODAFINIL
  21. KLONOPIN [Concomitant]
     Active Substance: CLONAZEPAM
  22. SILVADENE [Concomitant]
     Active Substance: SILVER SULFADIAZINE
  23. CLONIDINE. [Suspect]
     Active Substance: CLONIDINE
     Dosage: 299.71 MCG/DAY
     Route: 037
     Dates: start: 20150120

REACTIONS (3)
  - Fatigue [Recovered/Resolved]
  - Sedation [Recovered/Resolved]
  - Adverse drug reaction [Recovered/Resolved]
